FAERS Safety Report 7833456-2 (Version None)
Quarter: 2011Q4

REPORT INFORMATION
  Report Type: 
  Country: None (occurrence: None)
  Receive Date: 20111024
  Receipt Date: 20111020
  Transmission Date: 20120403
  Serious: Yes (Death, Hospitalization)
  Sender: FDA-Public Use
  Company Number: US-B.I. PHARMACEUTICALS,INC./RIDGEFIELD-2011-BP-18505BP

PATIENT
  Age: 81 Year
  Sex: Female
  Weight: 38.56 kg

DRUGS (9)
  1. AMLODIPINE [Concomitant]
     Dosage: 2.5 MG
     Dates: end: 20110630
  2. PRADAXA [Suspect]
     Indication: ATRIAL FIBRILLATION
     Dosage: 300 MG
     Route: 048
     Dates: start: 20101201, end: 20101201
  3. BENAZEPRIL HYDROCHLORIDE [Concomitant]
     Dosage: 10 MG
     Dates: start: 20110201, end: 20110630
  4. PRADAXA [Suspect]
     Dosage: 300 MG
     Route: 048
  5. METOPROLOL TARTRATE [Concomitant]
     Dosage: 150 MG
     Dates: start: 20110201, end: 20110630
  6. LASIX [Concomitant]
     Dosage: 20 MG
     Dates: end: 20110630
  7. SIMVASTATIN [Concomitant]
     Dosage: 20 MG
     Dates: end: 20110630
  8. LEVOTHYROXINE SODIUM [Concomitant]
     Dosage: 25 MCG
     Dates: start: 20101101, end: 20110630
  9. CELEXA [Concomitant]
     Dosage: 20 MG
     Dates: end: 20110630

REACTIONS (8)
  - ASTHENIA [None]
  - HEPATOTOXICITY [None]
  - DIZZINESS [None]
  - HYPOGLYCAEMIA [None]
  - GASTROENTERITIS [None]
  - HEPATIC NECROSIS [None]
  - HEPATIC FAILURE [None]
  - METABOLIC ACIDOSIS [None]
